FAERS Safety Report 7354932-5 (Version None)
Quarter: 2011Q1

REPORT INFORMATION
  Report Type: 
  Country: None (occurrence: None)
  Receive Date: 20110307
  Receipt Date: 20110111
  Transmission Date: 20110831
  Serious: Yes (Hospitalization)
  Sender: FDA-Public Use
  Company Number: 2011AP000014

PATIENT
  Age: 33 Year
  Sex: Male

DRUGS (3)
  1. LISINOPRIL [Concomitant]
  2. LOSARTAN POTASSIUM [Concomitant]
  3. ALLOPURINOL [Suspect]
     Indication: HYPERURICAEMIA
     Dosage: 300MG;QD

REACTIONS (13)
  - TACHYPNOEA [None]
  - DRUG RASH WITH EOSINOPHILIA AND SYSTEMIC SYMPTOMS [None]
  - MALAISE [None]
  - HYPOTENSION [None]
  - PYREXIA [None]
  - HYPOVOLAEMIA [None]
  - BLOOD CREATININE INCREASED [None]
  - FATIGUE [None]
  - HAEMOGLOBIN DECREASED [None]
  - OROPHARYNGEAL PAIN [None]
  - TACHYCARDIA [None]
  - ALANINE AMINOTRANSFERASE INCREASED [None]
  - BLOOD POTASSIUM INCREASED [None]
